FAERS Safety Report 6196992-3 (Version None)
Quarter: 2009Q2

REPORT INFORMATION
  Report Type: 
  Country: None (occurrence: None)
  Receive Date: 20090520
  Receipt Date: 20090518
  Transmission Date: 20091009
  Serious: Yes (Hospitalization)
  Sender: FDA-Public Use
  Company Number: US-PFIZER INC-2007108370

PATIENT
  Age: 55 Year
  Sex: Male
  Weight: 92.971 kg

DRUGS (5)
  1. CHANTIX [Suspect]
     Indication: SMOKING CESSATION THERAPY
     Dosage: 0.5 MG, 2X/DAY
     Route: 048
     Dates: start: 20070708, end: 20070714
  2. CHANTIX [Suspect]
     Dosage: 1 MG, 1X/DAY
     Dates: start: 20070715, end: 20070727
  3. HYDROCHLOROTHIAZIDE [Concomitant]
     Dosage: 25 MG, 1X/DAY
  4. ACETYLSALICYLIC ACID [Concomitant]
     Dosage: 81 MG, 1X/DAY
  5. MICONAZOLE [Concomitant]
     Dosage: 2 %, UNK
     Route: 061

REACTIONS (4)
  - ANGINA PECTORIS [None]
  - CYANOSIS [None]
  - DIZZINESS [None]
  - MUSCULAR WEAKNESS [None]
